FAERS Safety Report 10184653 (Version 1)
Quarter: 2014Q2

REPORT INFORMATION
  Report Type: Spontaneous
  Country: US (occurrence: None)
  Receive Date: 20140519
  Receipt Date: 20140519
  Transmission Date: 20141212
  Serious: Yes (Other)
  Sender: FDA-Public Use
  Company Number: SYM-2014-20610

PATIENT
  Age: 18 Year
  Sex: Female

DRUGS (2)
  1. MINOCYCLINE HYDROCHLORIDE [Suspect]
     Indication: ACNE
     Dosage: 25 M?
  2. RANITIDINE HYDROCHLORIDE (RANITIDINE HYDROCHLORIDE) [Concomitant]

REACTIONS (13)
  - Skin lesion [None]
  - Dermatitis bullous [None]
  - Pain [None]
  - Myalgia [None]
  - Arthralgia [None]
  - Joint stiffness [None]
  - Paraesthesia [None]
  - Joint swelling [None]
  - Erythema [None]
  - Synovitis [None]
  - Ulcer [None]
  - Livedo reticularis [None]
  - Panniculitis [None]
